FAERS Safety Report 7389085-0 (Version None)
Quarter: 2011Q2

REPORT INFORMATION
  Report Type: 
  Country: None (occurrence: None)
  Receive Date: 20110401
  Receipt Date: 20110324
  Transmission Date: 20111010
  Serious: Yes (Hospitalization)
  Sender: FDA-Public Use
  Company Number: US-ROCHE-757139

PATIENT
  Age: 66 Year
  Sex: Male
  Weight: 127 kg

DRUGS (13)
  1. TIOTROPIUM BROMIDE [Concomitant]
     Dosage: REPORTED AS : TIOTROPIUM INHALER
  2. DEXAMETHASONE [Concomitant]
     Dosage: DOSING FREQ: DAY BEFORE AND TWO DAYS AFTER CHEMO.
  3. DOCETAXEL [Suspect]
     Dosage: DOSING FREQUENCY: DAY 1 EVERY 3 WEEK
     Route: 042
     Dates: start: 20110112
  4. FINASTERIDE [Concomitant]
  5. LEVOTHYROXINE SODIUM [Concomitant]
  6. OMEPRAZOLE [Concomitant]
  7. BENZONATATE [Concomitant]
     Indication: COUGH
     Route: 048
  8. ASPIRIN [Concomitant]
  9. PROCHLORPERAZINE [Concomitant]
     Indication: NAUSEA
     Dosage: DOSING FREQ: PRN
  10. DICLOXACILLIN [Concomitant]
  11. BEVACIZUMAB [Suspect]
     Dosage: DOSING FREQUENCY: DAY 1 EVERY 3 WEEK
     Route: 042
     Dates: start: 20110112
  12. GEMCITABINE [Suspect]
     Dosage: DOSING FREQUENCY: DAY 1 AND DAY 8 EVERY 3 WEEK
     Route: 042
     Dates: start: 20110112
  13. PEGFILGRASTIM [Concomitant]
     Dosage: DOSING FREQ: SQ
     Dates: start: 20110120

REACTIONS (2)
  - ATRIAL FIBRILLATION [None]
  - PNEUMONIA [None]
